FAERS Safety Report 9110046 (Version 3)
Quarter: 2013Q1

REPORT INFORMATION
  Report Type: Spontaneous
  Country: JP (occurrence: JP)
  Receive Date: 20130222
  Receipt Date: 20130322
  Transmission Date: 20140127
  Serious: Yes (Other)
  Sender: FDA-Public Use
  Company Number: JP-PFIZER INC-2013065616

PATIENT
  Age: 68 Year
  Sex: Male

DRUGS (2)
  1. SUTENT [Suspect]
     Indication: RENAL CELL CARCINOMA
     Dosage: 25 MG, 1X/DAY
     Route: 048
     Dates: start: 20121119, end: 201302
  2. SUMIFERON [Suspect]
     Indication: RENAL CELL CARCINOMA
     Dosage: 600X10^4 IU
     Route: 058
     Dates: start: 20120903

REACTIONS (1)
  - Interstitial lung disease [Recovering/Resolving]
